FAERS Safety Report 18612316 (Version 4)
Quarter: 2021Q1

REPORT INFORMATION
  Report Type: Report from Study
  Country: US (occurrence: US)
  Receive Date: 20201214
  Receipt Date: 20210319
  Transmission Date: 20210419
  Serious: Yes (Other)
  Sender: FDA-Public Use
  Company Number: US-VERTEX PHARMACEUTICALS-2020-003396

PATIENT
  Age: 16 Year
  Sex: Female
  Weight: 60.4 kg

DRUGS (24)
  1. FLOVENT [Concomitant]
     Active Substance: FLUTICASONE PROPIONATE
     Dosage: 2 PUFFS
  2. LACTOBACILLUS RHAMNOSUS [Concomitant]
     Active Substance: LACTOBACILLUS RHAMNOSUS
     Dosage: 1 CAPSULE
     Route: 048
  3. PULMOZYME [Concomitant]
     Active Substance: DORNASE ALFA
     Dosage: 2.5 MILLIGRAM
  4. AMITIZA [Concomitant]
     Active Substance: LUBIPROSTONE
  5. PROAIR HFA [Concomitant]
     Active Substance: ALBUTEROL SULFATE
     Dosage: INHALE 2 PUFFS
  6. SODIUM CHLORIDE. [Concomitant]
     Active Substance: SODIUM CHLORIDE
     Dosage: 4 MILLILITER
     Route: 048
  7. POLYETHYLENE GLYCOL 3350. [Concomitant]
     Active Substance: POLYETHYLENE GLYCOL 3350
     Dosage: 17 GRAM, QID
  8. CULTURELLE [Concomitant]
     Active Substance: LACTOBACILLUS RHAMNOSUS
  9. CALCIUM [Concomitant]
     Active Substance: CALCIUM
  10. TRIKAFTA [Suspect]
     Active Substance: ELEXACAFTOR\IVACAFTOR\TEZACAFTOR
     Indication: CYSTIC FIBROSIS
     Dosage: 2 TABLETS(100MG ELEXACAFTOR/50MG TEZACAFTOR/75MG IVACAFTOR) AM AND 1 TABLET(150MG IVACAFTOR) PM
     Route: 048
     Dates: start: 20200116, end: 20210210
  11. GUAR GUM [Concomitant]
     Active Substance: GUAR GUM
     Dosage: 2 SCOOPS/DAY
  12. LIDOCAINE/PRILOCAINE [Concomitant]
     Active Substance: LIDOCAINE\PRILOCAINE
     Dosage: APPLY TOPICALLY TO BOTH ANTECUBITAL AREAS 30 MINUTES PRIOR TO LAB DRAW
  13. CREON [Concomitant]
     Active Substance: PANCRELIPASE AMYLASE\PANCRELIPASE LIPASE\PANCRELIPASE PROTEASE
     Dosage: 4?5 CAPSULES WITH MEALS, 3?4 CAPSULES WITH SNACKS
     Route: 048
  14. OMEPRAZOLE. [Concomitant]
     Active Substance: OMEPRAZOLE
     Dosage: 20 MILLIGRAM, QD
     Route: 048
  15. SENNOSIDES. [Concomitant]
     Active Substance: SENNOSIDES
  16. AZITHROMYCIN ANHYDROUS. [Concomitant]
     Active Substance: AZITHROMYCIN ANHYDROUS
     Dosage: 1 TABLET EVERY MONDAY, WEDNESDAY, FRIDAY
     Route: 048
  17. ITRACONAZOLE. [Concomitant]
     Active Substance: ITRACONAZOLE
  18. CETRIZINE [Concomitant]
     Active Substance: CETIRIZINE HYDROCHLORIDE
     Dosage: 5 MILLIGRAM, QD
     Route: 048
  19. MIRALAX [Concomitant]
     Active Substance: POLYETHYLENE GLYCOL 3350
  20. CALCIUM + MAGNESIUM + ZINK [Concomitant]
     Dosage: 3 TABLETS EVERYDAY
     Route: 048
  21. FLUTICASONE PROPIONATE. [Concomitant]
     Active Substance: FLUTICASONE PROPIONATE
     Dosage: 1 PUFF
  22. IBUPROFEN. [Concomitant]
     Active Substance: IBUPROFEN
     Dosage: 200 MILLIGRAM, BID
  23. HYPERTONIC SALINE SOLUTION [Concomitant]
     Active Substance: SODIUM CHLORIDE
  24. ERYTHROMYCIN. [Concomitant]
     Active Substance: ERYTHROMYCIN
     Dosage: UNK
     Dates: end: 202007

REACTIONS (30)
  - Tremor [Recovering/Resolving]
  - Middle insomnia [Recovering/Resolving]
  - Productive cough [Unknown]
  - Feeling abnormal [Unknown]
  - Achromobacter infection [Unknown]
  - Pseudomonas infection [Unknown]
  - Dyspnoea [Not Recovered/Not Resolved]
  - Chest discomfort [Not Recovered/Not Resolved]
  - Balance disorder [Unknown]
  - Nightmare [Not Recovered/Not Resolved]
  - Insomnia [Recovering/Resolving]
  - Migraine without aura [Recovering/Resolving]
  - Ankle fracture [Unknown]
  - Sweat test abnormal [Unknown]
  - Pulmonary function test decreased [Unknown]
  - Restlessness [Not Recovered/Not Resolved]
  - Hunger [Recovered/Resolved]
  - Nasopharyngitis [Recovering/Resolving]
  - Skin discolouration [Unknown]
  - Asthenia [Unknown]
  - Staphylococcal infection [Unknown]
  - Fatigue [Not Recovered/Not Resolved]
  - Pulmonary pain [Recovered/Resolved]
  - Cough [Recovered/Resolved]
  - Dizziness [Unknown]
  - Infective pulmonary exacerbation of cystic fibrosis [Unknown]
  - Anxiety [Recovered/Resolved]
  - Alopecia [Not Recovered/Not Resolved]
  - Personality change [Unknown]
  - Blood glucose decreased [Unknown]

NARRATIVE: CASE EVENT DATE: 2020
